FAERS Safety Report 7408912-1 (Version None)
Quarter: 2011Q2

REPORT INFORMATION
  Report Type: 
  Country: None (occurrence: None)
  Receive Date: 20110412
  Receipt Date: 20110328
  Transmission Date: 20111010
  Serious: Yes (Hospitalization, Disabling)
  Sender: FDA-Public Use
  Company Number: FR-PFIZER INC-FR-WYE-G06342610

PATIENT
  Age: 26 Year
  Sex: Female

DRUGS (2)
  1. TRIPHASIL-21 [Suspect]
     Indication: ORAL CONTRACEPTION
     Dosage: 1 DF, 1X/DAY
     Route: 048
  2. HUMIRA [Suspect]
     Indication: PSORIASIS
     Dosage: 40 MG TWICE A WEEK
     Route: 058
     Dates: start: 20091001, end: 20091210

REACTIONS (3)
  - PARAPLEGIA [None]
  - SPINAL CORD INFARCTION [None]
  - PARESIS [None]
